FAERS Safety Report 6916997-1 (Version None)
Quarter: 2010Q3

REPORT INFORMATION
  Report Type: 
  Country: None (occurrence: None)
  Receive Date: 20100810
  Receipt Date: 20100730
  Transmission Date: 20110219
  Serious: Yes (Hospitalization)
  Sender: FDA-Public Use
  Company Number: A0845700A

PATIENT
  Age: 51 Year
  Sex: Male
  Weight: 93 kg

DRUGS (5)
  1. AVANDIA [Suspect]
     Indication: DIABETES MELLITUS
     Dosage: 4MG TWICE PER DAY
     Route: 048
     Dates: start: 20030102, end: 20060303
  2. GLUCOPHAGE [Concomitant]
  3. ZOCOR [Concomitant]
  4. TYLENOL W/ CODEINE NO. 3 [Concomitant]
  5. MUSCLE RELAXER [Concomitant]

REACTIONS (3)
  - CORONARY ARTERY OCCLUSION [None]
  - MYOCARDIAL INFARCTION [None]
  - PAIN [None]
